FAERS Safety Report 8070298-X (Version None)
Quarter: 2012Q1

REPORT INFORMATION
  Report Type: 
  Country: None (occurrence: None)
  Receive Date: 20120118
  Receipt Date: 20120109
  Transmission Date: 20120608
  Serious: Yes (Death)
  Sender: FDA-Public Use
  Company Number: JPI-P-014825

PATIENT
  Age: 60 Year
  Sex: Male

DRUGS (2)
  1. XYREM [Suspect]
     Indication: SLEEP DISORDER
     Dosage: 8 GM (4 GM, 2 IN 1 D), ORAL 7.5 GM (3.75 GM, 2 IN 1 D), ORAL
     Route: 048
     Dates: start: 20060227
  2. XYREM [Suspect]
     Indication: SLEEP DISORDER
     Dosage: 8 GM (4 GM, 2 IN 1 D), ORAL 7.5 GM (3.75 GM, 2 IN 1 D), ORAL
     Route: 048
     Dates: start: 20060630, end: 20070115

REACTIONS (2)
  - SEPSIS [None]
  - CHRONIC LYMPHOCYTIC LEUKAEMIA [None]
